FAERS Safety Report 23218098 (Version 2)
Quarter: 2023Q4

REPORT INFORMATION
  Report Type: Report from Study
  Country: US (occurrence: US)
  Receive Date: 20231122
  Receipt Date: 20231127
  Transmission Date: 20240109
  Serious: Yes (Other)
  Sender: FDA-Public Use
  Company Number: US-UCBSA-2023055218

PATIENT
  Age: 13 Year
  Sex: Female
  Weight: 39 kg

DRUGS (8)
  1. FINTEPLA [Suspect]
     Active Substance: FENFLURAMINE
     Indication: Severe myoclonic epilepsy of infancy
     Dosage: 12.2 MILLIGRAM, DAILY
     Route: 048
  2. FINTEPLA [Suspect]
     Active Substance: FENFLURAMINE
     Dosage: 7.2 MILLIGRAM, DAILY
     Route: 048
     Dates: start: 202011
  3. FINTEPLA [Suspect]
     Active Substance: FENFLURAMINE
     Dosage: 11 MILLIGRAM, DAILY
     Route: 048
     Dates: start: 20201103, end: 20210510
  4. FINTEPLA [Suspect]
     Active Substance: FENFLURAMINE
     Dosage: 11 MILLIGRAM, DAILY
     Route: 048
     Dates: start: 20201106
  5. FINTEPLA [Suspect]
     Active Substance: FENFLURAMINE
     Dosage: 11 MILLIGRAM, DAILY
     Route: 048
     Dates: start: 202310
  6. FINTEPLA [Suspect]
     Active Substance: FENFLURAMINE
     Dosage: 2.5 MILLIGRAM, 2X/DAY (BID)
     Route: 048
  7. FINTEPLA [Suspect]
     Active Substance: FENFLURAMINE
     Dosage: 11 MILLIGRAM, DAILY
  8. STIRIPENTOL [Concomitant]
     Active Substance: STIRIPENTOL
     Indication: Product used for unknown indication
     Dosage: UNK

REACTIONS (3)
  - Tricuspid valve incompetence [Not Recovered/Not Resolved]
  - Aortic valve incompetence [Unknown]
  - Echocardiogram abnormal [Not Recovered/Not Resolved]

NARRATIVE: CASE EVENT DATE: 20220426
